FAERS Safety Report 19592505 (Version 1)
Quarter: 2021Q3

REPORT INFORMATION
  Report Type: Spontaneous
  Country: US (occurrence: US)
  Receive Date: 20210721
  Receipt Date: 20210721
  Transmission Date: 20211014
  Serious: Yes (Other)
  Sender: FDA-Public Use
  Company Number: None

PATIENT
  Age: 49 Year
  Sex: Female
  Weight: 90 kg

DRUGS (9)
  1. CEFDINIR 300MG CAPSULES [Suspect]
     Active Substance: CEFDINIR
     Indication: URINARY TRACT INFECTION
     Dosage: ?          QUANTITY:14 CAPSULE(S);?
     Route: 048
     Dates: start: 20210714, end: 20210721
  2. MELATONIN [Concomitant]
     Active Substance: MELATONIN
  3. MOBIC [Concomitant]
     Active Substance: MELOXICAM
  4. ROSUVASTATIN. [Concomitant]
     Active Substance: ROSUVASTATIN
  5. ASPIRIN. [Concomitant]
     Active Substance: ASPIRIN
  6. NEXIUM [Concomitant]
     Active Substance: ESOMEPRAZOLE MAGNESIUM
  7. STOOL SOFTENER (DOCUSATE) [Concomitant]
     Active Substance: DOCUSATE
  8. ROBAXIN [Concomitant]
     Active Substance: METHOCARBAMOL
  9. HYDROCODONE [Concomitant]
     Active Substance: HYDROCODONE

REACTIONS (1)
  - Urticaria [None]

NARRATIVE: CASE EVENT DATE: 20210717
